FAERS Safety Report 9893777 (Version 5)
Quarter: 2014Q2

REPORT INFORMATION
  Report Type: Spontaneous
  Country: US (occurrence: US)
  Receive Date: 20140213
  Receipt Date: 20140612
  Transmission Date: 20141212
  Serious: Yes (Life-Threatening, Hospitalization, Disabling, Other)
  Sender: FDA-Public Use
  Company Number: US-MERCK-1402USA005825

PATIENT
  Sex: Female
  Weight: 121.9 kg

DRUGS (7)
  1. JANUVIA [Suspect]
     Indication: TYPE 2 DIABETES MELLITUS
     Dosage: 100 MG, HS
     Route: 048
     Dates: start: 20070124, end: 20070812
  2. JANUVIA [Suspect]
     Dosage: 100 MG, QD
     Route: 048
     Dates: start: 20071029, end: 20080928
  3. CRESTOR [Concomitant]
     Indication: HYPERCHOLESTEROLAEMIA
     Dosage: 40 MG, HS
     Route: 048
     Dates: start: 2004
  4. HYDROCHLOROTHIAZIDE (+) LOSARTAN POTASSIUM [Concomitant]
     Indication: HYPERTENSION
     Dosage: UNK
     Dates: start: 2004
  5. CITALOPRAM [Concomitant]
     Indication: ANXIETY
     Dosage: UNK
     Dates: start: 2004
  6. NOVOLOG [Concomitant]
     Indication: TYPE 2 DIABETES MELLITUS
     Dosage: UNK
     Dates: start: 2004
  7. ACTOS [Concomitant]
     Indication: TYPE 2 DIABETES MELLITUS
     Dosage: UNK
     Dates: start: 2004

REACTIONS (31)
  - Pancreatic carcinoma [Not Recovered/Not Resolved]
  - Pancreatectomy [Unknown]
  - Cholecystectomy [Unknown]
  - Cholelithiasis [Unknown]
  - Cardiac disorder [Not Recovered/Not Resolved]
  - Intervertebral disc protrusion [Not Recovered/Not Resolved]
  - Pneumonia [Unknown]
  - Pancreatitis chronic [Not Recovered/Not Resolved]
  - Insulin resistance [Unknown]
  - Hyperglycaemia [Unknown]
  - Gastrooesophageal reflux disease [Not Recovered/Not Resolved]
  - Coronary artery disease [Unknown]
  - Coronary arterial stent insertion [Unknown]
  - Radicular pain [Unknown]
  - Fatigue [Not Recovered/Not Resolved]
  - Hypoaesthesia [Not Recovered/Not Resolved]
  - Anaemia [Recovered/Resolved]
  - Carpal tunnel syndrome [Unknown]
  - Osteoarthritis [Unknown]
  - Diabetic neuropathy [Unknown]
  - Hypertriglyceridaemia [Unknown]
  - Cholecystitis chronic [Not Recovered/Not Resolved]
  - Depression [Unknown]
  - Hepatic lesion [Unknown]
  - Pain in extremity [Not Recovered/Not Resolved]
  - Back pain [Not Recovered/Not Resolved]
  - Arthralgia [Not Recovered/Not Resolved]
  - Pain in extremity [Unknown]
  - Pain in extremity [Unknown]
  - Upper respiratory tract infection [Unknown]
  - Nasopharyngitis [Unknown]
